FAERS Safety Report 17525497 (Version 8)
Quarter: 2021Q2

REPORT INFORMATION
  Report Type: Report from Study
  Country: US (occurrence: US)
  Receive Date: 20200310
  Receipt Date: 20210525
  Transmission Date: 20210716
  Serious: No
  Sender: FDA-Public Use
  Company Number: US-AGIOS-2002US01667

PATIENT

DRUGS (16)
  1. VITAMIN B12 [Concomitant]
     Active Substance: CYANOCOBALAMIN
     Indication: PRODUCT USED FOR UNKNOWN INDICATION
  2. XANAX [Concomitant]
     Active Substance: ALPRAZOLAM
     Indication: PRODUCT USED FOR UNKNOWN INDICATION
     Dosage: UNK
  3. CIPROFLOXACIN. [Concomitant]
     Active Substance: CIPROFLOXACIN
  4. ALPRAZOLAM. [Concomitant]
     Active Substance: ALPRAZOLAM
     Indication: PRODUCT USED FOR UNKNOWN INDICATION
  5. TYLENOL EXTRA STRENGTH [Concomitant]
     Active Substance: ACETAMINOPHEN
     Indication: PRODUCT USED FOR UNKNOWN INDICATION
  6. ZOFRAN [Concomitant]
     Active Substance: ONDANSETRON HYDROCHLORIDE
     Indication: PRODUCT USED FOR UNKNOWN INDICATION
  7. TETRACYCLINE HYDROCHLORIDE. [Concomitant]
     Active Substance: TETRACYCLINE HYDROCHLORIDE
  8. LASIX [Concomitant]
     Active Substance: FUROSEMIDE
     Indication: PRODUCT USED FOR UNKNOWN INDICATION
  9. LIDOCAINE. [Concomitant]
     Active Substance: LIDOCAINE
  10. HYDROCHLOROTHIAZIDE. [Concomitant]
     Active Substance: HYDROCHLOROTHIAZIDE
  11. NORVASC [Concomitant]
     Active Substance: AMLODIPINE BESYLATE
  12. TIBSOVO [Suspect]
     Active Substance: IVOSIDENIB
     Indication: ACUTE MYELOID LEUKAEMIA
     Dosage: 250 MILLIGRAM, 2 TABLETS (500 MG) DAILY
     Route: 048
     Dates: start: 20200118
  13. SYNTHROID [Concomitant]
     Active Substance: LEVOTHYROXINE SODIUM
     Indication: PRODUCT USED FOR UNKNOWN INDICATION
  14. TIBSOVO [Suspect]
     Active Substance: IVOSIDENIB
     Dosage: 250 MILLIGRAM,QD
     Dates: start: 20200210
  15. LOSARTAN POTASSIUM. [Concomitant]
     Active Substance: LOSARTAN POTASSIUM
     Indication: PRODUCT USED FOR UNKNOWN INDICATION
  16. IMODIUM A?D [Concomitant]
     Active Substance: LOPERAMIDE HYDROCHLORIDE

REACTIONS (22)
  - Neuralgia [Unknown]
  - Tinnitus [Unknown]
  - Dyspepsia [Unknown]
  - Musculoskeletal stiffness [Unknown]
  - Arthralgia [Unknown]
  - Hyperaesthesia teeth [Unknown]
  - Nasal congestion [Unknown]
  - Arthritis [Unknown]
  - Abdominal discomfort [Unknown]
  - Swelling [Unknown]
  - White blood cell count increased [Unknown]
  - Upper limb fracture [Unknown]
  - Urinary incontinence [Unknown]
  - Joint swelling [Unknown]
  - Muscle tightness [Unknown]
  - Carpal tunnel syndrome [Unknown]
  - Hypoacusis [Unknown]
  - Haemoglobin abnormal [Unknown]
  - Diarrhoea [Recovered/Resolved]
  - Off label use [Unknown]
  - Hypersensitivity [Unknown]
  - Balance disorder [Unknown]

NARRATIVE: CASE EVENT DATE: 20200210
